FAERS Safety Report 7302354-5 (Version None)
Quarter: 2011Q1

REPORT INFORMATION
  Report Type: 
  Country: None (occurrence: None)
  Receive Date: 20110218
  Receipt Date: 20101119
  Transmission Date: 20110831
  Serious: No
  Sender: FDA-Public Use
  Company Number: US-BAYER-2011-005538

PATIENT
  Sex: Female

DRUGS (1)
  1. ASPIRIN [Suspect]
     Indication: ATRIAL FIBRILLATION
     Dosage: DAILY DOSE 325 MG
     Route: 048
     Dates: start: 20101104

REACTIONS (2)
  - ERYTHEMA [None]
  - SWELLING FACE [None]
